FAERS Safety Report 8312955-3 (Version None)
Quarter: 2012Q2

REPORT INFORMATION
  Report Type: 
  Country: None (occurrence: None)
  Receive Date: 20120426
  Receipt Date: 20120418
  Transmission Date: 20120825
  Serious: Yes (Other)
  Sender: FDA-Public Use
  Company Number: BR-US-EMD SERONO, INC.-7127222

PATIENT
  Sex: Male

DRUGS (1)
  1. REBIF [Suspect]
     Indication: NEURODEGENERATIVE DISORDER
     Dates: start: 20020101

REACTIONS (1)
  - HYPERTENSIVE CRISIS [None]
